FAERS Safety Report 6916654-1 (Version None)
Quarter: 2010Q3

REPORT INFORMATION
  Report Type: 
  Country: None (occurrence: None)
  Receive Date: 20100810
  Receipt Date: 20100804
  Transmission Date: 20110219
  Serious: Yes (Death, Hospitalization)
  Sender: FDA-Public Use
  Company Number: GB-ROCHE-716336

PATIENT
  Sex: Female
  Weight: 77 kg

DRUGS (9)
  1. BEVACIZUMAB [Suspect]
     Indication: GLIOBLASTOMA
     Dosage: DOUBLE BLINDED; LAST DOSE PRIOR TO SAE: 05 JULY 2010; FORM: LIQUID
     Route: 042
     Dates: start: 20100705, end: 20100705
  2. TEMOZOLOMIDE [Suspect]
     Indication: GLIOBLASTOMA
     Dosage: TEMPORARILY INTERRUPTED
     Route: 048
     Dates: start: 20100705, end: 20100712
  3. TEMOZOLOMIDE [Suspect]
     Route: 048
     Dates: start: 20100714, end: 20100719
  4. ALBUTEROL [Concomitant]
     Dates: start: 20070101, end: 20100728
  5. SERETIDE [Concomitant]
     Dosage: FORM: PUFFS
     Dates: start: 20070101, end: 20100728
  6. LAMOTRIGINE [Concomitant]
     Dates: start: 20100601, end: 20100728
  7. PERINDOPRIL [Concomitant]
     Dates: start: 20100701, end: 20100719
  8. OMEPRAZOLE [Concomitant]
     Dates: start: 20100601, end: 20100719
  9. DEXAMETHASONE [Concomitant]
     Dates: start: 20100601, end: 20100728

REACTIONS (1)
  - PULMONARY EMBOLISM [None]
